FAERS Safety Report 9306326 (Version 1)
Quarter: 2013Q2

REPORT INFORMATION
  Report Type: Spontaneous
  Country: ES (occurrence: None)
  Receive Date: 20130520
  Receipt Date: 20130520
  Transmission Date: 20140414
  Serious: Yes (Hospitalization, Other)
  Sender: FDA-Public Use
  Company Number: 2013P1005682

PATIENT
  Age: 11 Year
  Sex: Female

DRUGS (1)
  1. OXCARBAZEPINE [Suspect]
     Indication: SUICIDE ATTEMPT
     Route: 048

REACTIONS (9)
  - Suicide attempt [None]
  - Disorientation [None]
  - Speech disorder [None]
  - Movement disorder [None]
  - Nausea [None]
  - Vomiting [None]
  - Coma scale abnormal [None]
  - Mydriasis [None]
  - Incorrect dose administered [None]
